FAERS Safety Report 10074507 (Version 1)
Quarter: 2014Q2

REPORT INFORMATION
  Report Type: Spontaneous
  Country: US (occurrence: US)
  Receive Date: 20140411
  Receipt Date: 20140411
  Transmission Date: 20141212
  Serious: No
  Sender: FDA-Public Use
  Company Number: US-SA-2013SA115332

PATIENT
  Age: 75 Year
  Sex: Female
  Weight: 36 kg

DRUGS (1)
  1. ALLEGRA D [Suspect]
     Route: 048

REACTIONS (3)
  - Paraesthesia [Recovering/Resolving]
  - Rhinorrhoea [Unknown]
  - Wrong technique in drug usage process [Unknown]
